FAERS Safety Report 8385183-3 (Version None)
Quarter: 2012Q2

REPORT INFORMATION
  Report Type: 
  Country: None (occurrence: None)
  Receive Date: 20120525
  Receipt Date: 20120514
  Transmission Date: 20120825
  Serious: Yes (Other)
  Sender: FDA-Public Use
  Company Number: BR-AMGEN-BRASP2010012143

PATIENT
  Age: 57 Year
  Sex: Female
  Weight: 70 kg

DRUGS (4)
  1. ALGINAC [Concomitant]
     Dosage: UNK
  2. CEPHALEXIN [Concomitant]
     Dosage: UNK
  3. OMEPRAZOLE [Concomitant]
     Dosage: UNK
  4. ENBREL [Suspect]
     Indication: PSORIATIC ARTHROPATHY
     Dosage: 50 MG, WEEKLY (1X/WEEK)
     Route: 058
     Dates: start: 20100720

REACTIONS (6)
  - KNEE ARTHROPLASTY [None]
  - INJECTION SITE PAIN [None]
  - INJECTION SITE PRURITUS [None]
  - APPLICATION SITE PRURITUS [None]
  - MYALGIA [None]
  - APPLICATION SITE ERYTHEMA [None]
